FAERS Safety Report 5653356-6 (Version None)
Quarter: 2008Q1

REPORT INFORMATION
  Report Type: 
  Country: None (occurrence: None)
  Receive Date: 20080131
  Receipt Date: 20071026
  Transmission Date: 20080703
  Serious: No
  Sender: FDA-Public Use
  Company Number: US200710007008

PATIENT
  Age: 67 Year
  Sex: Male

DRUGS (6)
  1. BYETTA [Suspect]
     Indication: TYPE 2 DIABETES MELLITUS
     Dosage: 5 UG, 2/D, SUBCUTANEOUS
     Route: 058
     Dates: start: 20071001
  2. GLYBURIDE [Concomitant]
  3. PREVACID [Concomitant]
  4. MYLANTA (CALCIUM CARBONATE) [Concomitant]
  5. OXYGEN (OXYGEN) [Concomitant]
  6. C-PAP (NONE) [Concomitant]

REACTIONS (8)
  - BACK PAIN [None]
  - BLOOD GLUCOSE INCREASED [None]
  - DYSPEPSIA [None]
  - FATIGUE [None]
  - FLATULENCE [None]
  - MUSCULOSKELETAL PAIN [None]
  - NAUSEA [None]
  - WEIGHT DECREASED [None]
